FAERS Safety Report 14424697 (Version 1)
Quarter: 2018Q1

REPORT INFORMATION
  Report Type: Spontaneous
  Country: US (occurrence: US)
  Receive Date: 20180122
  Receipt Date: 20180122
  Transmission Date: 20180509
  Serious: Yes (Disabling)
  Sender: FDA-Public Use
  Company Number: None

PATIENT
  Age: 68 Year
  Sex: Male
  Weight: 105.46 kg

DRUGS (1)
  1. SACUBITRIL/VALSARTAN [Suspect]
     Active Substance: SACUBITRIL\VALSARTAN
     Indication: CARDIAC FAILURE CONGESTIVE
     Dosage: DOSE - 49/51 MG
     Route: 048

REACTIONS (5)
  - Muscle spasms [None]
  - Myalgia [None]
  - Arthralgia [None]
  - Weight increased [None]
  - Urinary retention [None]

NARRATIVE: CASE EVENT DATE: 20171019
